FAERS Safety Report 4721707-2 (Version None)
Quarter: 2005Q3

REPORT INFORMATION
  Report Type: 
  Country: None (occurrence: None)
  Receive Date: 20050721
  Receipt Date: 20050307
  Transmission Date: 20060218
  Serious: No
  Sender: FDA-Public Use
  Company Number: US-BRISTOL-MYERS SQUIBB COMPANY-12888111

PATIENT
  Age: 85 Year
  Sex: Female
  Weight: 41 kg

DRUGS (5)
  1. COUMADIN [Suspect]
     Indication: ATRIAL FIBRILLATION
     Dates: start: 20041101
  2. LANOXIN [Concomitant]
  3. GLYBURIDE [Concomitant]
  4. TOPROL-XL [Concomitant]
  5. FUROSEMIDE [Concomitant]

REACTIONS (3)
  - DISTURBANCE IN ATTENTION [None]
  - INSOMNIA [None]
  - MEMORY IMPAIRMENT [None]
